FAERS Safety Report 9220186 (Version 1)
Quarter: 2013Q2

REPORT INFORMATION
  Report Type: Spontaneous
  Country: US (occurrence: US)
  Receive Date: 20130409
  Receipt Date: 20130409
  Transmission Date: 20140414
  Serious: Yes (Hospitalization)
  Sender: FDA-Public Use
  Company Number: US-PFIZER INC-2013107739

PATIENT
  Age: 53 Year
  Sex: Male
  Weight: 106.58 kg

DRUGS (3)
  1. VIAGRA [Suspect]
     Indication: ERECTILE DYSFUNCTION
     Dosage: 100 MG, AS NEEDED
     Route: 048
  2. NOVOLOG [Concomitant]
     Indication: DIABETES MELLITUS
     Dosage: 20 IU, UNK
  3. LEVEMIR [Concomitant]
     Indication: DIABETES MELLITUS
     Dosage: 30 IU, UNK

REACTIONS (2)
  - Neuropathic arthropathy [Unknown]
  - Local swelling [Unknown]
